FAERS Safety Report 9199820 (Version 1)
Quarter: 2013Q1

REPORT INFORMATION
  Report Type: Report from Study
  Country: US (occurrence: US)
  Receive Date: 20130329
  Receipt Date: 20130329
  Transmission Date: 20140127
  Serious: Yes (Other)
  Sender: FDA-Public Use
  Company Number: US-JNJFOC-20130307547

PATIENT
  Sex: 0

DRUGS (1)
  1. NUCYNTA IR [Suspect]
     Indication: PRODUCT USED FOR UNKNOWN INDICATION
     Route: 065

REACTIONS (3)
  - Hallucination [Unknown]
  - Depression [Unknown]
  - Abnormal behaviour [Unknown]
